FAERS Safety Report 7313221-5 (Version None)
Quarter: 2011Q1

REPORT INFORMATION
  Report Type: 
  Country: None (occurrence: None)
  Receive Date: 20110225
  Receipt Date: 20110216
  Transmission Date: 20110831
  Serious: Yes (Hospitalization)
  Sender: FDA-Public Use
  Company Number: US-JNJFOC-20110206171

PATIENT
  Sex: Male
  Weight: 108.86 kg

DRUGS (11)
  1. FENTANYL-100 [Suspect]
     Route: 062
  2. FENTANYL-100 [Suspect]
     Route: 062
  3. FENTANYL CITRATE [Suspect]
     Indication: MUSCULOSKELETAL PAIN
     Route: 062
  4. FENTANYL CITRATE [Suspect]
     Route: 062
  5. FENTANYL CITRATE [Suspect]
     Indication: NECK PAIN
     Route: 062
  6. ASPIRIN [Concomitant]
     Indication: ANTICOAGULANT THERAPY
     Route: 048
  7. METOPROLOL SUCCINATE [Concomitant]
     Indication: BLOOD PRESSURE
     Route: 048
  8. FENTANYL CITRATE [Suspect]
     Route: 062
  9. FENTANYL-100 [Suspect]
     Indication: MUSCULOSKELETAL PAIN
     Route: 062
  10. FENTANYL-100 [Suspect]
     Indication: NECK PAIN
     Route: 062
  11. HORMONES [Concomitant]
     Indication: PROSTATE CANCER
     Route: 058

REACTIONS (6)
  - WITHDRAWAL SYNDROME [None]
  - ARTHROPATHY [None]
  - SUNBURN [None]
  - DRUG DOSE OMISSION [None]
  - POOR QUALITY DRUG ADMINISTERED [None]
  - PRODUCT QUALITY ISSUE [None]
